FAERS Safety Report 7487698-9 (Version None)
Quarter: 2011Q2

REPORT INFORMATION
  Report Type: 
  Country: None (occurrence: None)
  Receive Date: 20110518
  Receipt Date: 20110504
  Transmission Date: 20111010
  Serious: Yes (Hospitalization)
  Sender: FDA-Public Use
  Company Number: FR-JNJFOC-20110104204

PATIENT
  Sex: Male
  Weight: 33.7 kg

DRUGS (4)
  1. REMICADE [Suspect]
     Indication: CROHN'S DISEASE
     Route: 042
     Dates: start: 20081213, end: 20091203
  2. HUMIRA [Concomitant]
     Dates: start: 20091216
  3. ANTIBIOTICS [Concomitant]
     Indication: CROHN'S DISEASE
  4. ACYCLOVIR [Concomitant]

REACTIONS (1)
  - GASTROENTERITIS ADENOVIRUS [None]
